FAERS Safety Report 12713910 (Version 2)
Quarter: 2016Q3

REPORT INFORMATION
  Report Type: Spontaneous
  Country: US (occurrence: US)
  Receive Date: 20160905
  Receipt Date: 20160919
  Transmission Date: 20161109
  Serious: Yes (Other)
  Sender: FDA-Public Use
  Company Number: US-009507513-1608USA012853

PATIENT
  Age: 56 Year
  Sex: Female
  Weight: 72.56 kg

DRUGS (2)
  1. KEYTRUDA [Suspect]
     Active Substance: PEMBROLIZUMAB
     Indication: RENAL CELL CARCINOMA RECURRENT
     Dosage: THE PATIENT STARTED AND STOPPED KEYTRUDA THREE TIMES
     Route: 042
     Dates: start: 20141030, end: 20150930
  2. DIOVAN [Concomitant]
     Active Substance: VALSARTAN

REACTIONS (8)
  - Autoimmune disorder [Unknown]
  - Therapeutic response unexpected [Unknown]
  - Product use issue [Unknown]
  - Small fibre neuropathy [Not Recovered/Not Resolved]
  - Arthralgia [Not Recovered/Not Resolved]
  - Carpal tunnel syndrome [Not Recovered/Not Resolved]
  - Influenza like illness [Unknown]
  - Myalgia [Not Recovered/Not Resolved]

NARRATIVE: CASE EVENT DATE: 20141030
